FAERS Safety Report 4764392-6 (Version None)
Quarter: 2005Q3

REPORT INFORMATION
  Report Type: 
  Country: None (occurrence: None)
  Receive Date: 20050906
  Receipt Date: 20050829
  Transmission Date: 20060218
  Serious: Yes (Other)
  Sender: FDA-Public Use
  Company Number: 2005-08-2143

PATIENT
  Age: 43 Year
  Sex: Male

DRUGS (2)
  1. PEG-INTRON [Suspect]
     Dosage: SEE IMAGE
     Route: 058
     Dates: start: 20041016, end: 20050507
  2. PEG-INTRON [Suspect]
     Dosage: SEE IMAGE
     Route: 058
     Dates: start: 20050612

REACTIONS (2)
  - APPENDICITIS [None]
  - PHARMACEUTICAL PRODUCT COMPLAINT [None]
